FAERS Safety Report 4806312-1 (Version None)
Quarter: 2005Q4

REPORT INFORMATION
  Report Type: 
  Country: None (occurrence: None)
  Receive Date: 20051021
  Receipt Date: 20040803
  Transmission Date: 20060501
  Serious: Yes (Other)
  Sender: FDA-Public Use
  Company Number: US-ROCHE-376757

PATIENT
  Age: 38 Year
  Sex: Female

DRUGS (10)
  1. PEGASYS [Suspect]
     Indication: HEPATITIS C
     Route: 065
     Dates: start: 20040621
  2. PEGASYS [Suspect]
     Dosage: THERAPY STOPPED FOR APPROXIMATELY 2 MONTHS WHILE PATIENT WAS IN PRISON.
     Route: 065
     Dates: start: 20040729
  3. PEGASYS [Suspect]
     Route: 065
     Dates: start: 20050102, end: 20050715
  4. COPEGUS [Suspect]
     Indication: HEPATITIS C
     Route: 065
     Dates: start: 20040621, end: 20050715
  5. CIMETIDINE [Concomitant]
     Route: 065
  6. FUROSEMIDE [Concomitant]
     Route: 065
  7. NADOLOL [Concomitant]
     Indication: DRUG USE FOR UNKNOWN INDICATION
     Route: 065
  8. HYDROXYZINE [Concomitant]
     Route: 065
  9. HYDROCODONE [Concomitant]
     Indication: PAIN
     Route: 065
  10. ENULOSE [Concomitant]
     Indication: DRUG USE FOR UNKNOWN INDICATION
     Route: 065

REACTIONS (15)
  - ANAEMIA [None]
  - CONFUSIONAL STATE [None]
  - CONVULSION [None]
  - DEPRESSION [None]
  - DRUG DEPENDENCE [None]
  - DYSPNOEA [None]
  - FATIGUE [None]
  - GINGIVAL BLEEDING [None]
  - HYPERSOMNIA [None]
  - HYPOTRICHOSIS [None]
  - INFLUENZA LIKE ILLNESS [None]
  - MEMORY IMPAIRMENT [None]
  - MOOD SWINGS [None]
  - PLATELET COUNT DECREASED [None]
  - WHITE BLOOD CELL COUNT DECREASED [None]
